FAERS Safety Report 10021209 (Version 2)
Quarter: 2014Q1

REPORT INFORMATION
  Report Type: Spontaneous
  Country: US (occurrence: US)
  Receive Date: 20140319
  Receipt Date: 20140325
  Transmission Date: 20141002
  Serious: Yes (Death, Hospitalization, Other)
  Sender: FDA-Public Use
  Company Number: US-CELGENEUS-163-21880-14031849

PATIENT
  Age: 61 Year
  Sex: Female

DRUGS (1)
  1. REVLIMID [Suspect]
     Indication: PLASMA CELL MYELOMA
     Dosage: 25 MILLIGRAM
     Route: 048
     Dates: start: 201402, end: 20140316

REACTIONS (6)
  - Death [Fatal]
  - Abasia [Unknown]
  - Drug dose omission [Unknown]
  - Dizziness [Unknown]
  - Dyspnoea [Unknown]
  - Rash pruritic [Unknown]
